FAERS Safety Report 8588162-6 (Version None)
Quarter: 2012Q3

REPORT INFORMATION
  Report Type: 
  Country: None (occurrence: None)
  Receive Date: 20120731
  Receipt Date: 20120719
  Transmission Date: 20120928
  Serious: Yes (Hospitalization)
  Sender: FDA-Public Use
  Company Number: UTC-021167

PATIENT
  Age: 46 Year
  Sex: Female

DRUGS (2)
  1. REMODULIN [Suspect]
     Indication: PORTOPULMONARY HYPERTENSION
     Dosage: SUBCUTANEOUS
     Route: 058
  2. ADCIRCA [Concomitant]

REACTIONS (10)
  - RENAL FAILURE [None]
  - CELLULITIS [None]
  - SEPTIC SHOCK [None]
  - RENAL AND LIVER TRANSPLANT [None]
  - PULMONARY HYPERTENSION [None]
  - BACTERIAL SEPSIS [None]
  - CARDIOGENIC SHOCK [None]
  - MYOCARDIAL STRAIN [None]
  - LIVER FUNCTION TEST ABNORMAL [None]
  - HYPOTENSION [None]
